FAERS Safety Report 16426734 (Version 4)
Quarter: 2019Q3

REPORT INFORMATION
  Report Type: Report from Study
  Country: CO (occurrence: CO)
  Receive Date: 20190613
  Receipt Date: 20190712
  Transmission Date: 20191004
  Serious: Yes (Other)
  Sender: FDA-Public Use
  Company Number: CO-AMGEN-COLSL2019092291

PATIENT
  Age: 26 Year
  Sex: Female

DRUGS (2)
  1. BLINCYTO [Suspect]
     Active Substance: BLINATUMOMAB
     Dosage: 9 MICROGRAM, QD
     Route: 042
     Dates: start: 20190626, end: 20190702
  2. BLINCYTO [Suspect]
     Active Substance: BLINATUMOMAB
     Indication: PRECURSOR B-LYMPHOBLASTIC LYMPHOMA RECURRENT
     Dosage: 9 MICROGRAM, QD
     Route: 042
     Dates: start: 20190601, end: 20190605

REACTIONS (3)
  - Hepatotoxicity [Recovering/Resolving]
  - Cytokine release syndrome [Not Recovered/Not Resolved]
  - Toxicity to various agents [Recovered/Resolved]

NARRATIVE: CASE EVENT DATE: 201906
